FAERS Safety Report 9048826 (Version 1)
Quarter: 2013Q1

REPORT INFORMATION
  Report Type: Spontaneous
  Country: US (occurrence: None)
  Receive Date: 20130130
  Receipt Date: 20130130
  Transmission Date: 20140127
  Serious: No
  Sender: FDA-Public Use
  Company Number: None

PATIENT
  Age: 51 Year
  Sex: Female

DRUGS (2)
  1. PEGASYS 180MCG GENENTECH [Suspect]
     Indication: HEPATITIS C
     Dates: start: 20121106, end: 20130114
  2. RIBAVIRIN 200MG TAB ZYDUS [Suspect]
     Indication: HEPATITIS C
     Route: 048
     Dates: start: 20121106, end: 20130114

REACTIONS (5)
  - Rash [None]
  - Neutropenia [None]
  - Anaemia [None]
  - Nausea [None]
  - Fatigue [None]
